FAERS Safety Report 20969409 (Version 1)
Quarter: 2022Q2

REPORT INFORMATION
  Report Type: Spontaneous
  Country: JP (occurrence: JP)
  Receive Date: 20220616
  Receipt Date: 20220616
  Transmission Date: 20220721
  Serious: Yes (Death)
  Sender: FDA-Public Use
  Company Number: JP-PFIZER INC-PV202200003034

PATIENT
  Age: 46 Year
  Sex: Female
  Weight: 45.9 kg

DRUGS (6)
  1. LORBRENA [Suspect]
     Active Substance: LORLATINIB
     Indication: Non-small cell lung cancer
     Dosage: 100 MG, DAILY
     Dates: start: 20181128, end: 20181204
  2. LORBRENA [Suspect]
     Active Substance: LORLATINIB
     Dosage: 75 MG, DAILY
     Dates: start: 20181205, end: 20190604
  3. LORBRENA [Suspect]
     Active Substance: LORLATINIB
     Dosage: 50 MG, DAILY
     Dates: start: 20190605
  4. VORICONAZOLE [Concomitant]
     Active Substance: VORICONAZOLE
     Dosage: 300 MG, DAILY
     Route: 048
     Dates: start: 20181203, end: 20190606
  5. ITRACONAZOLE [Concomitant]
     Active Substance: ITRACONAZOLE
     Dosage: 200 MG, DAILY
     Route: 048
     Dates: start: 20190607, end: 20190612
  6. EDOXABAN [Concomitant]
     Active Substance: EDOXABAN
     Dosage: 15 MG, DAILY
     Route: 048
     Dates: start: 20190519

REACTIONS (1)
  - Neoplasm progression [Fatal]
